FAERS Safety Report 6885558-5 (Version None)
Quarter: 2010Q3

REPORT INFORMATION
  Report Type: 
  Country: None (occurrence: None)
  Receive Date: 20100729
  Receipt Date: 20080401
  Transmission Date: 20110219
  Serious: No
  Sender: FDA-Public Use
  Company Number: US-PFIZER INC-2008028757

PATIENT
  Sex: Female
  Weight: 67.272 kg

DRUGS (3)
  1. CELEBREX [Suspect]
     Indication: ARTHROPATHY
     Route: 048
     Dates: start: 20080328
  2. CRESTOR [Concomitant]
     Indication: BLOOD CHOLESTEROL INCREASED
  3. LEXAPRO [Concomitant]
     Indication: DEPRESSION

REACTIONS (1)
  - DIARRHOEA [None]
